FAERS Safety Report 5637397-0 (Version None)
Quarter: 2008Q1

REPORT INFORMATION
  Report Type: 
  Country: None (occurrence: None)
  Receive Date: 20080225
  Receipt Date: 20080215
  Transmission Date: 20080703
  Serious: Yes (Other)
  Sender: FDA-Public Use
  Company Number: AU-PFIZER INC-2008008141

PATIENT
  Sex: Male

DRUGS (1)
  1. SUTENT [Suspect]
     Indication: RENAL CELL CARCINOMA

REACTIONS (4)
  - AORTIC STENOSIS [None]
  - CARDIAC FAILURE [None]
  - DISEASE PROGRESSION [None]
  - RENAL CELL CARCINOMA [None]
